FAERS Safety Report 8686628 (Version 5)
Quarter: 2014Q2

REPORT INFORMATION
  Report Type: Spontaneous
  Country: BR (occurrence: BR)
  Receive Date: 20120727
  Receipt Date: 20140616
  Transmission Date: 20141212
  Serious: Yes (Hospitalization, Other)
  Sender: FDA-Public Use
  Company Number: BR-AMGEN-BRASP2012045203

PATIENT
  Age: 51 Year
  Sex: Female
  Weight: 83 kg

DRUGS (18)
  1. ENBREL [Suspect]
     Indication: RHEUMATOID ARTHRITIS
     Dosage: UNK
     Route: 058
     Dates: start: 201110, end: 201112
  2. ENBREL [Suspect]
     Dosage: 50 MG, QWK
     Route: 058
     Dates: start: 2012, end: 201211
  3. ENBREL [Suspect]
     Dosage: 50 MG, QWK
     Route: 058
     Dates: start: 20121127, end: 201307
  4. ENBREL [Suspect]
     Dosage: 50 MG, QWK
     Route: 065
     Dates: end: 201309
  5. METHOTREXATE [Concomitant]
     Dosage: STRENGTH 10 MG
  6. OMEPRAZOLE [Concomitant]
     Dosage: STRENGTH 20 MG
  7. NIMESULIDE [Concomitant]
     Dosage: STRENGTH 50 MG
  8. LOSARTAN [Concomitant]
     Indication: HYPERTENSION
     Dosage: 50 MG, 2X/DAY
     Route: 048
  9. HYDROCHLOROTHIAZIDE [Concomitant]
     Dosage: 1 TABLET (25 MG), 1X/DAY
     Route: 048
  10. PARACETAMOL [Concomitant]
     Dosage: UNK
  11. FOLIC ACID [Concomitant]
     Dosage: UNK
  12. CODEINE [Concomitant]
     Dosage: UNK
  13. TRAMAL [Concomitant]
     Dosage: UNK
  14. COLTRAX [Concomitant]
     Dosage: UNK
  15. CELEBRA [Concomitant]
     Dosage: UNK
  16. SIMVASTATIN [Concomitant]
     Dosage: 1 TABLET (UNSPECIFIED DOSE), 1X/DAY
     Route: 048
  17. VICTOZA [Concomitant]
     Dosage: 0.6 IU, DAILY
     Route: 058
  18. METICORTEN [Concomitant]
     Dosage: UNK

REACTIONS (22)
  - Burning sensation [Unknown]
  - Diverticulitis [Unknown]
  - Uterine polyp [Unknown]
  - Haemorrhage [Unknown]
  - Blood cholesterol increased [Unknown]
  - Immunosuppression [Not Recovered/Not Resolved]
  - Oropharyngeal pain [Unknown]
  - Secretion discharge [Unknown]
  - Pain [Unknown]
  - Pyrexia [Recovered/Resolved]
  - Cough [Unknown]
  - Lymphoma [Unknown]
  - Uterine disorder [Unknown]
  - Diabetes mellitus [Unknown]
  - Herpes zoster [Unknown]
  - Sinusitis [Unknown]
  - Influenza [Unknown]
  - Candida infection [Unknown]
  - Chest pain [Unknown]
  - Tooth infection [Unknown]
  - Infection [Unknown]
  - Pneumonia [Unknown]
